FAERS Safety Report 5186821-9 (Version None)
Quarter: 2006Q4

REPORT INFORMATION
  Report Type: 
  Country: None (occurrence: None)
  Receive Date: 20061220
  Receipt Date: 20061101
  Transmission Date: 20070319
  Serious: No
  Sender: FDA-Public Use
  Company Number: US-AMGEN-KDL198881

PATIENT
  Sex: Female

DRUGS (4)
  1. ENBREL [Suspect]
     Indication: RHEUMATOID ARTHRITIS
     Route: 058
     Dates: start: 20060903
  2. PLAQUENIL [Concomitant]
     Dates: start: 20040501
  3. ARAVA [Concomitant]
     Dates: start: 20040101
  4. METHOTREXATE [Concomitant]
     Dates: start: 20050101

REACTIONS (2)
  - EARLY MORNING AWAKENING [None]
  - HEADACHE [None]
